FAERS Safety Report 5120106-1 (Version None)
Quarter: 2006Q4

REPORT INFORMATION
  Report Type: 
  Country: None (occurrence: None)
  Receive Date: 20061002
  Receipt Date: 20061002
  Transmission Date: 20070319
  Serious: Yes (Hospitalization)
  Sender: FDA-Public Use
  Company Number: None

PATIENT
  Sex: Female
  Weight: 46.7 kg

DRUGS (1)
  1. TAXOL [Suspect]
     Dosage: 72 MG
     Dates: end: 20060728

REACTIONS (6)
  - ASTHENIA [None]
  - FATIGUE [None]
  - HYPOTENSION [None]
  - LUNG INFILTRATION [None]
  - MENTAL STATUS CHANGES [None]
  - RESPIRATORY ARREST [None]
